FAERS Safety Report 14506599 (Version 1)
Quarter: 2018Q1

REPORT INFORMATION
  Report Type: Spontaneous
  Country: US (occurrence: US)
  Receive Date: 20180208
  Receipt Date: 20180208
  Transmission Date: 20180509
  Serious: Yes (Death, Hospitalization, Other)
  Sender: FDA-Public Use
  Company Number: US-FRESENIUS MEDICAL CARE RENAL THERAPIES GROUP-FMC-1801-000184

PATIENT
  Age: 80 Year
  Sex: Male
  Weight: 117.9 kg

DRUGS (12)
  1. ACETAMINOPHEN. [Concomitant]
     Active Substance: ACETAMINOPHEN
  2. DELFLEX WITH DEXTROSE 2.5% LOW MAGNESIUM LOW CALCIUM [Suspect]
     Active Substance: CALCIUM CHLORIDE\DEXTROSE\MAGNESIUM CHLORIDE\SODIUM CHLORIDE\SODIUM LACTATE
     Indication: END STAGE RENAL DISEASE
     Dosage: 3 CYLES OF 3000ML
     Route: 033
     Dates: start: 20170418
  3. SODIUM BICARBONATE. [Concomitant]
     Active Substance: SODIUM BICARBONATE
  4. LORATADINE. [Concomitant]
     Active Substance: LORATADINE
  5. VANCOMYCIN [Suspect]
     Active Substance: VANCOMYCIN
     Indication: PERITONITIS
  6. ASPRIN [Concomitant]
     Active Substance: ASPIRIN
  7. CHOLECALCIFEROL [Concomitant]
     Active Substance: CHOLECALCIFEROL
  8. CARVEDILOL. [Concomitant]
     Active Substance: CARVEDILOL
  9. FUROSEMIDE. [Concomitant]
     Active Substance: FUROSEMIDE
  10. ATORVASTATIN [Concomitant]
     Active Substance: ATORVASTATIN
  11. INSULIN [Concomitant]
     Active Substance: INSULIN NOS
  12. FLUTICASONE. [Concomitant]
     Active Substance: FLUTICASONE

REACTIONS (4)
  - Shock [Unknown]
  - Cardiac arrest [Fatal]
  - Sepsis [Unknown]
  - Peritonitis [Unknown]

NARRATIVE: CASE EVENT DATE: 20180127
